FAERS Safety Report 23182204 (Version 1)
Quarter: 2023Q4

REPORT INFORMATION
  Report Type: Spontaneous
  Country: US (occurrence: US)
  Receive Date: 20231114
  Receipt Date: 20231114
  Transmission Date: 20240110
  Serious: No
  Sender: FDA-Public Use
  Company Number: US-JNJFOC-20231069186

PATIENT

DRUGS (1)
  1. DARZALEX [Suspect]
     Active Substance: DARATUMUMAB
     Indication: Product used for unknown indication
     Dosage: 2X500 MG VIALS AND 3X100 MG VIALS
     Route: 042

REACTIONS (2)
  - Product dose omission issue [Unknown]
  - Complication associated with device [Unknown]
